FAERS Safety Report 4876286-6 (Version None)
Quarter: 2005Q4

REPORT INFORMATION
  Report Type: 
  Country: None (occurrence: None)
  Receive Date: 20051206
  Receipt Date: 20051007
  Transmission Date: 20060501
  Serious: No
  Sender: FDA-Public Use
  Company Number: USA0510110645

PATIENT
  Sex: Female

DRUGS (11)
  1. CYMBALTA [Suspect]
     Indication: NEUROPATHY PERIPHERAL
     Dosage: 30 MG
     Dates: start: 20050906
  2. GABAPENTIN [Concomitant]
  3. PREVACID [Concomitant]
  4. BUSPIRONE [Concomitant]
  5. DETROL LA [Concomitant]
  6. NYSTATIN [Concomitant]
  7. MIACALCIN [Concomitant]
  8. STOOL SOFTENER (DOCUSATE SODIUM) [Concomitant]
  9. VIACTIV (CALCIUM) [Concomitant]
  10. GLUCOSAMINE W/ CHONDROITIN [Concomitant]
  11. VITAMIN B COMPLEX CAP [Concomitant]

REACTIONS (6)
  - DIZZINESS [None]
  - DRUG ADMINISTRATION ERROR [None]
  - MALAISE [None]
  - NAUSEA [None]
  - OESOPHAGEAL DISCOMFORT [None]
  - OESOPHAGEAL PAIN [None]
